FAERS Safety Report 15401540 (Version 1)
Quarter: 2018Q3

REPORT INFORMATION
  Report Type: Spontaneous
  Country: US (occurrence: US)
  Receive Date: 20180914
  Receipt Date: 20180914
  Transmission Date: 20181010
  Serious: Yes (Life-Threatening, Hospitalization)
  Sender: FDA-Public Use
  Company Number: None

PATIENT
  Age: 56 Year
  Sex: Female
  Weight: 58.97 kg

DRUGS (6)
  1. MOV [Concomitant]
  2. CALCIUM [Concomitant]
     Active Substance: CALCIUM
  3. MIRENA [Suspect]
     Active Substance: LEVONORGESTREL
     Dates: end: 20180731
  4. REITN A [Concomitant]
  5. LATISSE [Concomitant]
     Active Substance: BIMATOPROST
  6. VITAMIN B12 [Concomitant]
     Active Substance: CYANOCOBALAMIN

REACTIONS (1)
  - Invasive ductal breast carcinoma [None]

NARRATIVE: CASE EVENT DATE: 20180715
